FAERS Safety Report 7418598-8 (Version None)
Quarter: 2011Q2

REPORT INFORMATION
  Report Type: 
  Country: None (occurrence: None)
  Receive Date: 20110415
  Receipt Date: 20110331
  Transmission Date: 20111010
  Serious: Yes (Other)
  Sender: FDA-Public Use
  Company Number: AU-GENENTECH-316407

PATIENT
  Sex: Male

DRUGS (1)
  1. LUCENTIS [Suspect]
     Indication: MACULAR DEGENERATION
     Dosage: 0.05 ML, UNK
     Route: 031
     Dates: start: 20101201

REACTIONS (5)
  - CORNEAL ABRASION [None]
  - CONJUNCTIVAL HAEMORRHAGE [None]
  - MALAISE [None]
  - EYE PAIN [None]
  - VITREOUS FLOATERS [None]
